FAERS Safety Report 11885396 (Version 1)
Quarter: 2016Q1

REPORT INFORMATION
  Report Type: Spontaneous
  Country: FR (occurrence: FR)
  Receive Date: 20160104
  Receipt Date: 20160104
  Transmission Date: 20160526
  Serious: Yes (Hospitalization, Other)
  Sender: FDA-Public Use
  Company Number: FR-PFIZER INC-2015477170

PATIENT
  Age: 62 Year
  Sex: Female

DRUGS (9)
  1. MYFORTIC [Suspect]
     Active Substance: MYCOPHENOLATE SODIUM
     Indication: PROPHYLAXIS AGAINST TRANSPLANT REJECTION
     Dosage: 720 MG, 2X/DAY
     Route: 048
     Dates: start: 20150620
  2. ROVALCYTE [Concomitant]
     Active Substance: VALGANCICLOVIR HYDROCHLORIDE
     Indication: ANTIVIRAL PROPHYLAXIS
     Dosage: 450 MG, THREE TIMES A WEEK
     Dates: start: 201505
  3. EUPANTOL [Suspect]
     Active Substance: PANTOPRAZOLE SODIUM
     Indication: GASTROOESOPHAGEAL REFLUX DISEASE
     Dosage: 40 MG, UNK
     Route: 048
     Dates: start: 20150710
  4. CORTANCYL [Suspect]
     Active Substance: PREDNISONE
     Indication: PROPHYLAXIS AGAINST TRANSPLANT REJECTION
     Dosage: 20 MG, 1X/DAY
     Route: 048
     Dates: start: 20150620
  5. PROGRAF [Interacting]
     Active Substance: TACROLIMUS\TACROLIMUS ANHYDROUS
     Dosage: 1.5 MG, 2X/DAY (AT 06 AM AND 06 PM)
     Route: 048
     Dates: start: 20150712
  6. REPAGLINIDE. [Suspect]
     Active Substance: REPAGLINIDE
     Indication: PROPHYLAXIS AGAINST TRANSPLANT REJECTION
     Dosage: 1 MG, 3X/DAY
     Route: 048
     Dates: start: 20150620
  7. PROGRAF [Interacting]
     Active Substance: TACROLIMUS\TACROLIMUS ANHYDROUS
     Indication: PROPHYLAXIS AGAINST TRANSPLANT REJECTION
     Dosage: 2 MG, 2X/DAY (AT 6 AM AND 6 PM)
     Route: 048
     Dates: start: 20150620, end: 20150708
  8. SPECIAFOLDINE [Concomitant]
     Active Substance: FOLIC ACID
     Indication: ANAEMIA
     Dosage: 15 MG, 1X/DAY
     Route: 048
     Dates: start: 201505
  9. EUPANTOL [Interacting]
     Active Substance: PANTOPRAZOLE SODIUM
     Indication: GASTROOESOPHAGEAL REFLUX DISEASE
     Dosage: 2 ML, Q1HR (ELECTRIC SYRINGE)
     Route: 042
     Dates: start: 20150707, end: 20150709

REACTIONS (3)
  - Drug interaction [Recovering/Resolving]
  - Pancreatitis chronic [Recovering/Resolving]
  - Pancreatitis acute [Recovering/Resolving]

NARRATIVE: CASE EVENT DATE: 20150707
